FAERS Safety Report 10787865 (Version 5)
Quarter: 2016Q2

REPORT INFORMATION
  Report Type: Spontaneous
  Country: US (occurrence: US)
  Receive Date: 20150210
  Receipt Date: 20160425
  Transmission Date: 20160815
  Serious: Yes (Hospitalization, Other)
  Sender: FDA-Public Use
  Company Number: ADR-2015-00280

PATIENT
  Age: 70 Year
  Sex: Female

DRUGS (38)
  1. ZENPEP [Suspect]
     Active Substance: PANCRELIPASE AMYLASE\PANCRELIPASE LIPASE\PANCRELIPASE PROTEASE
     Dosage: 20,000-68,000-109,000 UNITS 3 TIMES/DAY
     Route: 048
  2. VITAMIN C-ASCORBATE [Suspect]
     Active Substance: CALCIUM ASCORBATE
     Dosage: 1,000MG  TWICE DAILY
     Route: 048
  3. LIORESAL [Suspect]
     Active Substance: BACLOFEN
     Dosage: 7.1MCG/DAY
     Route: 037
  4. CYPROHEPTADINE. [Suspect]
     Active Substance: CYPROHEPTADINE
     Dosage: 4MG/ 3 TIMES/DAY
     Route: 048
  5. CALCIUM CARBONATE/VITAMIN D3 [Suspect]
     Active Substance: CALCIUM CARBONATE\CHOLECALCIFEROL
     Dosage: 1 TAB TWICE DAILY
     Route: 048
  6. PROTONIX [Suspect]
     Active Substance: PANTOPRAZOLE SODIUM
     Dosage: 40MG DAILY
     Route: 048
  7. VITAMIN B COMPLEX [Suspect]
     Active Substance: CYANOCOBALAMIN\DEXPANTHENOL\NIACINAMIDE\PYRIDOXINE HYDROCHLORIDE\RIBOFLAVIN 5^-PHOSPHATE SODIUM\THIAMINE HYDROCHLORIDE\VITAMIN B COMPLEX
     Dosage: ONE TAB TWICE DAILY
     Route: 048
  8. LOVAZA [Suspect]
     Active Substance: OMEGA-3-ACID ETHYL ESTERS
     Dosage: 1 G TWICE DAILY
     Route: 048
  9. K-DUR [Suspect]
     Active Substance: POTASSIUM CHLORIDE
     Dosage: 20MEQ TWICE DAILY
     Route: 048
  10. DILAUDID [Suspect]
     Active Substance: HYDROMORPHONE HYDROCHLORIDE
     Dosage: 6 MG/ML
     Route: 037
  11. COMPOUNDED [Suspect]
     Active Substance: UNSPECIFIED INGREDIENT
     Dosage: 1-2 G 4 TIME DAILY AS NEEDED
     Dates: start: 20150207
  12. DILAUDID [Suspect]
     Active Substance: HYDROMORPHONE HYDROCHLORIDE
     Dosage: 5.6MG/DAY
     Route: 037
     Dates: start: 20120709
  13. LIORESAL [Suspect]
     Active Substance: BACLOFEN
     Dosage: 34.5MCG/DAY
     Route: 037
     Dates: start: 20120709
  14. MULTIVITAMIN [Suspect]
     Active Substance: VITAMINS
     Dosage: TAKE 1 TAB DAILY
     Route: 048
  15. LYRICA [Suspect]
     Active Substance: PREGABALIN
     Dosage: 25MG/DAY
  16. NORCO [Suspect]
     Active Substance: ACETAMINOPHEN\HYDROCODONE BITARTRATE
     Dosage: 10-325MG ONE TAB EVERY 6 HOURS AS NEEDED FOR PAIN
     Route: 048
     Dates: start: 20150207
  17. OPANA ER [Suspect]
     Active Substance: OXYMORPHONE HYDROCHLORIDE
     Dosage: 10MG ONE TAB EVERY 8 HOURS
     Route: 048
     Dates: start: 20150207
  18. EMLA [Suspect]
     Active Substance: LIDOCAINE\PRILOCAINE
     Dosage: 2.5 PERCENT
     Route: 061
  19. ZANTAC [Suspect]
     Active Substance: RANITIDINE HYDROCHLORIDE
     Dosage: 150MG AT BEDTIME
     Route: 048
  20. LIORESAL [Suspect]
     Active Substance: BACLOFEN
     Dosage: 40 MCG/DAY
     Route: 037
  21. LIORESAL [Suspect]
     Active Substance: BACLOFEN
     Dosage: 6MCG/DAY
     Route: 037
     Dates: start: 20121004
  22. LIORESAL [Suspect]
     Active Substance: BACLOFEN
     Dosage: 20MCG/DAY
     Route: 037
  23. LIDODERM [Suspect]
     Active Substance: LIDOCAINE
     Dosage: 700 MG
     Route: 061
  24. NEURONTIN [Suspect]
     Active Substance: GABAPENTIN
  25. LIORESAL [Suspect]
     Active Substance: BACLOFEN
     Dosage: 7.184 MCG/DAY
     Route: 037
  26. DILAUDID [Suspect]
     Active Substance: HYDROMORPHONE HYDROCHLORIDE
     Dosage: 1MG/DAY
     Route: 037
  27. EFFEXOR XR [Suspect]
     Active Substance: VENLAFAXINE HYDROCHLORIDE
     Dosage: 150MG DAILY
     Route: 048
  28. ZYRTEC [Suspect]
     Active Substance: CETIRIZINE HYDROCHLORIDE
     Dosage: 10 MG DAILY
     Route: 048
  29. BENADRYL [Suspect]
     Active Substance: DIPHENHYDRAMINE HYDROCHLORIDE
  30. DILAUDID [Suspect]
     Active Substance: HYDROMORPHONE HYDROCHLORIDE
     Dosage: 1MG/DAY
     Route: 037
     Dates: start: 20121004
  31. LASIX [Suspect]
     Active Substance: FUROSEMIDE
     Dosage: 40MG TWICE DAILY
     Route: 048
  32. VALIUM [Suspect]
     Active Substance: DIAZEPAM
  33. COENZYME Q10 [Suspect]
     Active Substance: UBIDECARENONE
     Dosage: 200MG DAILY
     Route: 048
  34. DILAUDID [Suspect]
     Active Substance: HYDROMORPHONE HYDROCHLORIDE
     Dosage: 6.5MG/DAY
     Route: 037
  35. DILAUDID [Suspect]
     Active Substance: HYDROMORPHONE HYDROCHLORIDE
     Dosage: 1.0804MG/DAY
     Route: 037
  36. LIORESAL [Suspect]
     Active Substance: BACLOFEN
     Dosage: 10 MG 3 TIMES/DAY AS NEEDED
     Route: 048
  37. ZOLOFT [Suspect]
     Active Substance: SERTRALINE HYDROCHLORIDE
     Dosage: 50MG  DAILY
     Route: 048
  38. K-DUR [Suspect]
     Active Substance: POTASSIUM CHLORIDE
     Dosage: 20MEQ  DAILY
     Route: 048

REACTIONS (76)
  - Gastrooesophageal reflux disease [Recovered/Resolved]
  - Tenderness [Recovered/Resolved]
  - Temperature regulation disorder [Recovered/Resolved]
  - Depression [Recovered/Resolved]
  - Insomnia [Recovered/Resolved]
  - Flatulence [Recovered/Resolved]
  - Gait disturbance [Recovered/Resolved]
  - Muscle tightness [Recovered/Resolved]
  - Diplopia [Recovered/Resolved]
  - Neck pain [Recovered/Resolved]
  - No therapeutic response [Recovered/Resolved]
  - Back pain [Recovered/Resolved]
  - Intestinal obstruction [Recovered/Resolved]
  - Duodenal ulcer [Recovered/Resolved]
  - Micturition urgency [Recovered/Resolved]
  - Arthritis [Recovered/Resolved]
  - Cognitive disorder [Recovered/Resolved]
  - Drug withdrawal syndrome [Recovered/Resolved]
  - Headache [Recovered/Resolved]
  - Urinary retention [Recovered/Resolved]
  - Pain in extremity [Recovered/Resolved]
  - Abdominal distension [Recovered/Resolved]
  - Muscle spasms [Recovered/Resolved]
  - Somnolence [Recovered/Resolved]
  - Dysphagia [Recovered/Resolved]
  - Memory impairment [Recovered/Resolved]
  - Nuclear magnetic resonance imaging abnormal [Recovered/Resolved]
  - Pancreatitis [Recovered/Resolved]
  - Sedation [Recovered/Resolved]
  - Paraesthesia [Recovered/Resolved]
  - Urinary incontinence [Recovered/Resolved]
  - Osteoarthritis [Recovered/Resolved]
  - Cough [Recovered/Resolved]
  - Myalgia [Recovered/Resolved]
  - Compression fracture [Recovered/Resolved]
  - Deafness [Recovered/Resolved]
  - Nervousness [Recovered/Resolved]
  - Hypoaesthesia [Recovering/Resolving]
  - Syncope [Recovered/Resolved]
  - Fatigue [Recovered/Resolved]
  - Vision blurred [Recovered/Resolved]
  - Hypophagia [Recovered/Resolved]
  - Asthma [Recovered/Resolved]
  - Pyrexia [Recovered/Resolved]
  - Dyspepsia [Recovered/Resolved]
  - Confusion postoperative [Recovered/Resolved]
  - Sinus disorder [Recovered/Resolved]
  - Spinal cord compression [Recovered/Resolved]
  - Spinal cord oedema [Recovered/Resolved]
  - Infusion site mass [Recovered/Resolved]
  - Diarrhoea [Recovered/Resolved]
  - Muscular weakness [Recovered/Resolved]
  - Night sweats [Recovered/Resolved]
  - Pain [Recovered/Resolved]
  - Sciatica [Recovered/Resolved]
  - Performance status decreased [Recovered/Resolved]
  - Myelomalacia [Recovered/Resolved]
  - Decreased appetite [Recovered/Resolved]
  - Balance disorder [Recovered/Resolved]
  - Diplegia [Recovered/Resolved]
  - Motor dysfunction [Recovered/Resolved]
  - Carpal tunnel syndrome [Recovered/Resolved]
  - Multiple allergies [Recovered/Resolved]
  - Nocturia [Recovered/Resolved]
  - Osteoporosis [Recovered/Resolved]
  - Tremor [Recovered/Resolved]
  - Urinary hesitation [Recovered/Resolved]
  - Crying [Recovered/Resolved]
  - Nausea [Recovered/Resolved]
  - Abdominal pain [Recovered/Resolved]
  - Intervertebral disc degeneration [Recovered/Resolved]
  - Fall [Recovered/Resolved]
  - Kyphosis [Recovered/Resolved]
  - Gastric ulcer [Recovered/Resolved]
  - Visual impairment [Recovered/Resolved]
  - Intervertebral disc protrusion [Recovered/Resolved]
